FAERS Safety Report 23819882 (Version 2)
Quarter: 2024Q2

REPORT INFORMATION
  Report Type: Spontaneous
  Country: TR (occurrence: TR)
  Receive Date: 20240506
  Receipt Date: 20240507
  Transmission Date: 20240716
  Serious: Yes (Other)
  Sender: FDA-Public Use
  Company Number: TR-PERRIGO-24TR002003

PATIENT
  Age: 33 Year
  Sex: Female
  Weight: 54 kg

DRUGS (1)
  1. ELLA [Suspect]
     Active Substance: ULIPRISTAL ACETATE
     Indication: Post coital contraception
     Dosage: 1 DOSAGE FORM, SINGLE
     Route: 048
     Dates: start: 20240203, end: 20240203

REACTIONS (4)
  - Abortion spontaneous [Recovered/Resolved]
  - Pregnancy after post coital contraception [Recovered/Resolved]
  - Groin pain [Recovered/Resolved]
  - Pain in extremity [Recovered/Resolved]

NARRATIVE: CASE EVENT DATE: 20240201
